FAERS Safety Report 10011668 (Version 1)
Quarter: 2014Q1

REPORT INFORMATION
  Report Type: Spontaneous
  Country: US (occurrence: None)
  Receive Date: 20140304
  Receipt Date: 20140304
  Transmission Date: 20141002
  Serious: Yes (Other)
  Sender: FDA-Public Use
  Company Number: RB-56527-2013

PATIENT
  Age: 51 Year
  Sex: Female

DRUGS (1)
  1. SUBOXONE [Suspect]
     Indication: DRUG DEPENDENCE
     Route: 060
     Dates: start: 2010, end: 2010

REACTIONS (6)
  - Hallucination [None]
  - Nausea [None]
  - Euphoric mood [None]
  - Wrong technique in drug usage process [None]
  - Abdominal pain upper [None]
  - Anxiety [None]
